FAERS Safety Report 10467584 (Version 3)
Quarter: 2015Q1

REPORT INFORMATION
  Report Type: Spontaneous
  Country: ZA (occurrence: ZA)
  Receive Date: 20140922
  Receipt Date: 20150223
  Transmission Date: 20150720
  Serious: Yes (Hospitalization, Other)
  Sender: FDA-Public Use
  Company Number: ZA-ABBVIE-14K-143-1275234-00

PATIENT
  Age: 55 Year
  Sex: Male
  Weight: 84 kg

DRUGS (3)
  1. HUMIRA [Suspect]
     Active Substance: ADALIMUMAB
     Route: 058
     Dates: start: 20140902
  2. PENICILLIN NOS [Suspect]
     Active Substance: PENICILLIN
     Indication: LOWER RESPIRATORY TRACT INFECTION
     Route: 065
     Dates: start: 2014
  3. HUMIRA [Suspect]
     Active Substance: ADALIMUMAB
     Indication: PSORIATIC ARTHROPATHY
     Route: 058
     Dates: end: 201407

REACTIONS (12)
  - Post viral fatigue syndrome [Recovered/Resolved]
  - Procedural complication [Unknown]
  - Cerebrospinal fluid leakage [Unknown]
  - Influenza [Recovered/Resolved]
  - Cytomegalovirus infection [Unknown]
  - Lower respiratory tract infection [Recovering/Resolving]
  - Depression [Unknown]
  - Dyspnoea [Not Recovered/Not Resolved]
  - Allergic pharyngitis [Unknown]
  - Drug ineffective [Unknown]
  - Upper-airway cough syndrome [Unknown]
  - Acute sinusitis [Unknown]

NARRATIVE: CASE EVENT DATE: 2014
